FAERS Safety Report 9018468 (Version 1)
Quarter: 2013Q1

REPORT INFORMATION
  Report Type: Spontaneous
  Country: US (occurrence: None)
  Receive Date: 20130111
  Receipt Date: 20130111
  Transmission Date: 20140127
  Serious: Yes (Other)
  Sender: FDA-Public Use
  Company Number: None

PATIENT
  Age: 63 Year
  Sex: Male
  Weight: 122.47 kg

DRUGS (1)
  1. AMBIEN [Suspect]

REACTIONS (2)
  - Abnormal behaviour [None]
  - Middle insomnia [None]
